FAERS Safety Report 8078071-3 (Version None)
Quarter: 2012Q1

REPORT INFORMATION
  Report Type: 
  Country: None (occurrence: None)
  Receive Date: 20120127
  Receipt Date: 20110105
  Transmission Date: 20120608
  Serious: No
  Sender: FDA-Public Use
  Company Number: US-ABBOTT-11P-163-0695702-00

PATIENT
  Sex: Female
  Weight: 108.96 kg

DRUGS (7)
  1. MULTI-VITAMIN [Concomitant]
     Indication: SUPPLEMENTATION THERAPY
     Route: 048
  2. HUMIRA [Suspect]
     Route: 058
     Dates: start: 20100401, end: 20100801
  3. HUMIRA [Suspect]
     Indication: PSORIASIS
     Route: 058
     Dates: start: 20090901, end: 20091201
  4. UNKNOWN OINTMENT [Concomitant]
     Indication: PSORIASIS
     Route: 061
  5. UNKNOWN CREAM [Concomitant]
     Indication: PSORIASIS
     Route: 061
  6. UNKNOWN OINTMENT [Concomitant]
     Route: 061
  7. HUMIRA [Suspect]
     Route: 058
     Dates: start: 20100801

REACTIONS (4)
  - DRY SKIN [None]
  - PSORIASIS [None]
  - RASH MACULAR [None]
  - PAIN OF SKIN [None]
